FAERS Safety Report 7010594-8 (Version None)
Quarter: 2010Q3

REPORT INFORMATION
  Report Type: 
  Country: None (occurrence: None)
  Receive Date: 20100923
  Receipt Date: 20100921
  Transmission Date: 20110219
  Serious: Yes (Hospitalization)
  Sender: FDA-Public Use
  Company Number: GB-AMGEN-KDC439662

PATIENT
  Sex: Male

DRUGS (19)
  1. VECTIBIX [Suspect]
     Indication: GASTROOESOPHAGEAL CANCER
     Dates: start: 20100311
  2. EPIRUBICIN [Suspect]
     Dates: start: 20100311
  3. OXALIPLATIN [Suspect]
     Dates: start: 20100311
  4. CAPECITABINE [Suspect]
     Dates: start: 20100311, end: 20100908
  5. AMPICILLIN SODIUM/SULBACTAM SODIUM [Concomitant]
     Dates: start: 20100712
  6. HYDROCORTISONE [Concomitant]
     Dates: start: 20100712
  7. GAVISCON [Concomitant]
     Dates: start: 20100701
  8. CHLORPHENIRAMINE MALEATE [Concomitant]
     Route: 048
     Dates: start: 20100701
  9. LORAZEPAM [Concomitant]
     Route: 048
     Dates: start: 20100701
  10. ACETAMINOPHEN [Concomitant]
     Route: 048
     Dates: start: 20100701
  11. DEXAMETHASONE [Concomitant]
     Dates: start: 20100511
  12. LANSOPRAZOLE [Concomitant]
  13. NULYTELY [Concomitant]
  14. DOCUSATE [Concomitant]
  15. TEMAZEPAM [Concomitant]
  16. METOCLOPRAMIDE [Concomitant]
     Dates: start: 20100501
  17. CODEINE [Concomitant]
     Dates: start: 20100711
  18. MORPHINE [Concomitant]
     Dates: start: 20100711
  19. AMITRIPTYLINE HCL [Concomitant]

REACTIONS (1)
  - LUNG INFECTION [None]
